FAERS Safety Report 5061968-6 (Version None)
Quarter: 2006Q3

REPORT INFORMATION
  Report Type: 
  Country: None (occurrence: None)
  Receive Date: 20060721
  Receipt Date: 20060711
  Transmission Date: 20061208
  Serious: Yes (Other)
  Sender: FDA-Public Use
  Company Number: 2006086867

PATIENT
  Age: 73 Year
  Sex: Male
  Weight: 73.9363 kg

DRUGS (6)
  1. XANAX [Suspect]
     Indication: ANXIETY
     Dosage: 1.5 MG (0.5 MG, 3 IN 1 D)
     Dates: start: 20030101
  2. PLAVIX [Concomitant]
  3. ATACAND [Concomitant]
  4. HYDROCHLOROTHIAZIDE [Concomitant]
  5. ZOCOR [Concomitant]
  6. VITAMINS [Concomitant]

REACTIONS (12)
  - ABNORMAL DREAMS [None]
  - DRUG WITHDRAWAL SYNDROME [None]
  - DYSPHAGIA [None]
  - EXTRASYSTOLES [None]
  - GASTROENTERITIS [None]
  - HALLUCINATION [None]
  - HALLUCINATION, VISUAL [None]
  - INAPPROPRIATE SCHEDULE OF DRUG ADMINISTRATION [None]
  - NIGHTMARE [None]
  - THINKING ABNORMAL [None]
  - VENTRICULAR EXTRASYSTOLES [None]
  - WRONG TECHNIQUE IN DRUG USAGE PROCESS [None]
